FAERS Safety Report 9529054 (Version 1)
Quarter: 2013Q3

REPORT INFORMATION
  Report Type: Not Available
  Country: US (occurrence: US)
  Receive Date: 20130916
  Receipt Date: 20130916
  Transmission Date: 20140515
  Serious: No
  Sender: FDA-Public Use
  Company Number: US-LUNDBECK-DKLU1087597

PATIENT
  Age: 34 Year
  Sex: Female

DRUGS (4)
  1. ONFI [Suspect]
     Indication: CONVULSION
  2. ONFI [Suspect]
  3. ONFI [Suspect]
  4. ATIVAN [Suspect]
     Indication: NERVOUS SYSTEM DISORDER

REACTIONS (3)
  - Hallucination [Recovering/Resolving]
  - Delusion [Recovering/Resolving]
  - Anxiety [Recovering/Resolving]
